FAERS Safety Report 23627069 (Version 1)
Quarter: 2024Q1

REPORT INFORMATION
  Report Type: Report from Study
  Country: US (occurrence: US)
  Receive Date: 20240313
  Receipt Date: 20240313
  Transmission Date: 20240409
  Serious: No
  Sender: FDA-Public Use
  Company Number: US-SPRINGWORKS THERAPEUTICS-SW-001247

PATIENT
  Sex: Female

DRUGS (1)
  1. NIROGACESTAT [Suspect]
     Active Substance: NIROGACESTAT
     Indication: Product used for unknown indication
     Dosage: 150 MILLIGRAM, BID
     Dates: start: 20240124

REACTIONS (10)
  - Abdominal distension [Not Recovered/Not Resolved]
  - Flatulence [Unknown]
  - Vomiting [Unknown]
  - Dry throat [Not Recovered/Not Resolved]
  - Glossodynia [Unknown]
  - Furuncle [Not Recovered/Not Resolved]
  - Fatigue [Not Recovered/Not Resolved]
  - Alopecia [Not Recovered/Not Resolved]
  - Diarrhoea [Unknown]
  - Rash [Unknown]
